FAERS Safety Report 13293814 (Version 2)
Quarter: 2017Q2

REPORT INFORMATION
  Report Type: Spontaneous
  Country: FR (occurrence: FR)
  Receive Date: 20170303
  Receipt Date: 20170606
  Transmission Date: 20170830
  Serious: Yes (Hospitalization, Other)
  Sender: FDA-Public Use
  Company Number: FR-ASTRAZENECA-2017SE22150

PATIENT
  Age: 27279 Day
  Sex: Female

DRUGS (13)
  1. DUROGESIC [Concomitant]
     Active Substance: FENTANYL
  2. LYRICA [Concomitant]
     Active Substance: PREGABALIN
  3. PANTOPRAZOLE [Concomitant]
     Active Substance: PANTOPRAZOLE
  4. TAGRISSO [Suspect]
     Active Substance: OSIMERTINIB
     Indication: LUNG NEOPLASM MALIGNANT
     Route: 048
  5. ALPRAZOLAM. [Concomitant]
     Active Substance: ALPRAZOLAM
  6. LAROXYL [Concomitant]
     Active Substance: AMITRIPTYLINE
  7. LIDOCAINE. [Concomitant]
     Active Substance: LIDOCAINE
  8. TAGRISSO [Suspect]
     Active Substance: OSIMERTINIB
     Indication: LUNG NEOPLASM MALIGNANT
     Route: 048
     Dates: start: 20161214, end: 201702
  9. PARACETAMOL [Concomitant]
     Active Substance: ACETAMINOPHEN
  10. LOXEN [Concomitant]
     Active Substance: NICARDIPINE HYDROCHLORIDE
  11. ZOPICLONE [Concomitant]
     Active Substance: ZOPICLONE
  12. TAGRISSO [Suspect]
     Active Substance: OSIMERTINIB
     Indication: LUNG NEOPLASM MALIGNANT
     Route: 048
     Dates: start: 20161103, end: 20161128
  13. CITALOPRAM [Concomitant]
     Active Substance: CITALOPRAM HYDROBROMIDE

REACTIONS (2)
  - Neutropenia [Recovered/Resolved]
  - Dyspepsia [Unknown]

NARRATIVE: CASE EVENT DATE: 20161128
